FAERS Safety Report 8189853-1 (Version None)
Quarter: 2012Q1

REPORT INFORMATION
  Report Type: 
  Country: None (occurrence: None)
  Receive Date: 20120307
  Receipt Date: 20111212
  Transmission Date: 20120608
  Serious: No
  Sender: FDA-Public Use
  Company Number: US-GLAXOSMITHKLINE-A0958491A

PATIENT
  Sex: Male

DRUGS (3)
  1. REQUIP [Suspect]
     Indication: RESTLESS LEGS SYNDROME
     Dosage: 4MG UNKNOWN
     Route: 065
  2. AMITRIPTYLINE HCL [Suspect]
     Dosage: 225MG UNKNOWN
     Route: 065
  3. AMBIEN [Suspect]
     Indication: SLEEP DISORDER

REACTIONS (4)
  - HYPOKINESIA [None]
  - DYSKINESIA [None]
  - SPEECH DISORDER [None]
  - SLEEP DISORDER [None]
